FAERS Safety Report 13153259 (Version 1)
Quarter: 2017Q1

REPORT INFORMATION
  Report Type: Spontaneous
  Country: NL (occurrence: NL)
  Receive Date: 20170126
  Receipt Date: 20170126
  Transmission Date: 20170428
  Serious: Yes (Death, Other)
  Sender: FDA-Public Use
  Company Number: PHHY2017NL009483

PATIENT
  Age: 56 Year
  Sex: Female

DRUGS (3)
  1. METFORMIN [Suspect]
     Active Substance: METFORMIN HYDROCHLORIDE
     Indication: PRODUCT USED FOR UNKNOWN INDICATION
     Dosage: UNK
     Route: 065
     Dates: start: 20150404
  2. OMEPRAZOLE. [Suspect]
     Active Substance: OMEPRAZOLE
     Indication: GASTROINTESTINAL DISORDER
     Route: 065
  3. PANTOPRAZOLE [Suspect]
     Active Substance: PANTOPRAZOLE SODIUM
     Indication: GASTROINTESTINAL DISORDER
     Route: 065

REACTIONS (10)
  - Dehydration [Fatal]
  - Dyspnoea [Fatal]
  - Drug ineffective [Unknown]
  - Hypovolaemic shock [Fatal]
  - Gastrointestinal disorder [Fatal]
  - Vomiting [Fatal]
  - Faeces soft [Fatal]
  - Malaise [Unknown]
  - Hyperosmolar hyperglycaemic state [Fatal]
  - Drug dispensing error [Unknown]

NARRATIVE: CASE EVENT DATE: 20150404
